FAERS Safety Report 24189768 (Version 1)
Quarter: 2024Q3

REPORT INFORMATION
  Report Type: Spontaneous
  Country: GB (occurrence: GB)
  Receive Date: 20240808
  Receipt Date: 20240808
  Transmission Date: 20241016
  Serious: Yes (Other)
  Sender: HIKMA
  Company Number: None

PATIENT
  Age: 75 Year
  Sex: Male

DRUGS (5)
  1. CIPROFLOXACIN [Suspect]
     Active Substance: CIPROFLOXACIN
     Indication: Graft infection
     Dosage: UNKNOWN, BID
     Route: 042
     Dates: end: 20240724
  2. LINEZOLID [Suspect]
     Active Substance: LINEZOLID
     Indication: Graft infection
     Dosage: 600 MILLIGRAM, Q12H
     Route: 065
     Dates: start: 20240627, end: 20240724
  3. TEICOPLANIN [Suspect]
     Active Substance: TEICOPLANIN
     Indication: Graft infection
     Dosage: UNKNOWN, QD
     Route: 042
     Dates: end: 20240724
  4. VANCOMYCIN [Suspect]
     Active Substance: VANCOMYCIN
     Indication: Graft infection
     Dosage: UNKNOWN, BID
     Route: 042
     Dates: end: 20240724
  5. TAMSULOSIN [Concomitant]
     Active Substance: TAMSULOSIN
     Indication: Prostatic disorder
     Dosage: UNKNOWN
     Route: 065

REACTIONS (6)
  - Aphasia [Recovering/Resolving]
  - Anaemia [Recovering/Resolving]
  - Malaise [Recovering/Resolving]
  - Fatigue [Recovering/Resolving]
  - Brain fog [Recovering/Resolving]
  - Illness [Recovering/Resolving]
